FAERS Safety Report 20081199 (Version 1)
Quarter: 2021Q4

REPORT INFORMATION
  Report Type: Spontaneous
  Country: BR (occurrence: None)
  Receive Date: 20211117
  Receipt Date: 20211117
  Transmission Date: 20220303
  Serious: Yes (Other)
  Sender: FDA-Public Use
  Company Number: BR-ROCHE-2951076

PATIENT
  Sex: Female

DRUGS (2)
  1. CLONAZEPAM [Suspect]
     Active Substance: CLONAZEPAM
     Indication: Product used for unknown indication
     Dosage: HALF TABLET
     Route: 065
  2. CHAMOMILE [Concomitant]
     Active Substance: CHAMOMILE

REACTIONS (6)
  - Dependence [Not Recovered/Not Resolved]
  - Disability [Unknown]
  - Nervous system disorder [Not Recovered/Not Resolved]
  - Aggression [Unknown]
  - Libido increased [Not Recovered/Not Resolved]
  - Mental disorder [Not Recovered/Not Resolved]
